FAERS Safety Report 7151256-6 (Version None)
Quarter: 2010Q4

REPORT INFORMATION
  Report Type: 
  Country: None (occurrence: None)
  Receive Date: 20101210
  Receipt Date: 20101124
  Transmission Date: 20110411
  Serious: Yes (Death, Hospitalization)
  Sender: FDA-Public Use
  Company Number: JP-BAYER-200910120BYL

PATIENT
  Age: 77 Year
  Sex: Female

DRUGS (3)
  1. NEXAVAR [Suspect]
     Indication: RENAL CELL CARCINOMA
     Dosage: 800 MG (DAILY DOSE), , ORAL
     Route: 048
     Dates: start: 20080611, end: 20080620
  2. NEXAVAR [Suspect]
     Route: 048
     Dates: start: 20080702, end: 20080729
  3. NEXAVAR [Suspect]
     Dosage: 800 MG (DAILY DOSE), , ORAL
     Route: 048
     Dates: start: 20080730, end: 20090201

REACTIONS (7)
  - ECCHYMOSIS [None]
  - HYPERKALAEMIA [None]
  - MALIGNANT NEOPLASM PROGRESSION [None]
  - PURPURA [None]
  - RASH [None]
  - RENAL CELL CARCINOMA [None]
  - VOMITING [None]
